FAERS Safety Report 4856006-1 (Version None)
Quarter: 2005Q4

REPORT INFORMATION
  Report Type: 
  Country: None (occurrence: None)
  Receive Date: 20051216
  Receipt Date: 20050927
  Transmission Date: 20060501
  Serious: Yes (Other)
  Sender: FDA-Public Use
  Company Number: 2005UW14600

PATIENT
  Age: 62 Year
  Sex: Male
  Weight: 101 kg

DRUGS (3)
  1. NEXIUM [Suspect]
     Indication: ILL-DEFINED DISORDER
  2. CELECOXIB [Suspect]
     Indication: ILL-DEFINED DISORDER
     Route: 048
  3. TRAZODONE HCL [Suspect]
     Indication: ILL-DEFINED DISORDER

REACTIONS (7)
  - BLOOD PRESSURE INCREASED [None]
  - FACE OEDEMA [None]
  - GLOMERULONEPHRITIS MINIMAL LESION [None]
  - KIDNEY FIBROSIS [None]
  - LOCALISED OEDEMA [None]
  - PITTING OEDEMA [None]
  - RENAL TUBULAR NECROSIS [None]
